FAERS Safety Report 4296443-X (Version None)
Quarter: 2004Q1

REPORT INFORMATION
  Report Type: 
  Country: None (occurrence: None)
  Receive Date: 20040212
  Receipt Date: 20040206
  Transmission Date: 20041129
  Serious: Yes (Hospitalization)
  Sender: FDA-Public Use
  Company Number: 2004198183FR

PATIENT
  Age: 56 Year
  Sex: Male
  Weight: 99 kg

DRUGS (5)
  1. ALDACTONE [Suspect]
     Dosage: 50 MG, QD, ORAL
     Route: 048
     Dates: start: 20000428, end: 20000504
  2. ATARAX [Concomitant]
  3. LASILIX [Concomitant]
  4. DUPHALAC [Concomitant]
  5. ALBUMIN (HUMAN) [Concomitant]

REACTIONS (4)
  - DERMATITIS ALLERGIC [None]
  - PRURITUS [None]
  - RASH [None]
  - TOXIC SKIN ERUPTION [None]
